FAERS Safety Report 11223970 (Version 2)
Quarter: 2015Q3

REPORT INFORMATION
  Report Type: Spontaneous
  Country: US (occurrence: US)
  Receive Date: 20150629
  Receipt Date: 20150709
  Transmission Date: 20151125
  Serious: No
  Sender: FDA-Public Use
  Company Number: US-AMGEN-USASP2015061576

PATIENT
  Age: 63 Year
  Sex: Male
  Weight: 83.9 kg

DRUGS (1)
  1. ENBREL [Suspect]
     Active Substance: ETANERCEPT
     Indication: PSORIASIS
     Dosage: 50 MG, 2 TIMES/WK (72 TO 96 HOURS APART)
     Route: 058
     Dates: start: 20150612

REACTIONS (4)
  - Asthenia [Unknown]
  - Oropharyngeal pain [Recovered/Resolved]
  - Nausea [Unknown]
  - Hot flush [Unknown]

NARRATIVE: CASE EVENT DATE: 20150612
